FAERS Safety Report 9180161 (Version 1)
Quarter: 2012Q4

REPORT INFORMATION
  Report Type: 
  Country: CZ (occurrence: CZ)
  Receive Date: 20121029
  Receipt Date: 20121029
  Transmission Date: 20130627
  Serious: Yes (Hospitalization, Other)
  Sender: FDA-Public Use
  Company Number: CZ-009507513-1210CZE006210

PATIENT
  Age: 5 Year
  Sex: Female
  Weight: 16 kg

DRUGS (1)
  1. AERIUS [Suspect]
     Indication: RHINITIS
     Dosage: UNK
     Route: 048
     Dates: start: 20120925

REACTIONS (1)
  - Accidental overdose [Unknown]
